FAERS Safety Report 9678468 (Version 2)
Quarter: 2013Q4

REPORT INFORMATION
  Report Type: Report from Study
  Country: US (occurrence: US)
  Receive Date: 20131108
  Receipt Date: 20131127
  Transmission Date: 20140711
  Serious: Yes (Hospitalization, Other)
  Sender: FDA-Public Use
  Company Number: US-ABBVIE-13P-163-1164312-00

PATIENT
  Age: 59 Year
  Sex: Male

DRUGS (4)
  1. HUMIRA [Suspect]
     Indication: COLITIS ULCERATIVE
     Dates: start: 20130921, end: 20130921
  2. HUMIRA [Suspect]
     Dates: start: 20131005, end: 20131005
  3. HUMIRA [Suspect]
     Dates: start: 20131018, end: 20131018
  4. ASACOL [Concomitant]
     Indication: CROHN^S DISEASE

REACTIONS (6)
  - Haemoglobin decreased [Recovering/Resolving]
  - Colitis ulcerative [Recovering/Resolving]
  - Drug ineffective [Not Recovered/Not Resolved]
  - Asthenia [Not Recovered/Not Resolved]
  - Asthenia [Not Recovered/Not Resolved]
  - Diarrhoea [Not Recovered/Not Resolved]
